FAERS Safety Report 5030093-2 (Version None)
Quarter: 2006Q2

REPORT INFORMATION
  Report Type: 
  Country: None (occurrence: None)
  Receive Date: 20060614
  Receipt Date: 20060601
  Transmission Date: 20061013
  Serious: Yes (Hospitalization)
  Sender: FDA-Public Use
  Company Number: 2005165434

PATIENT
  Age: 56 Year
  Sex: Female

DRUGS (8)
  1. VIAGRA [Suspect]
     Indication: PULMONARY HYPERTENSION
     Dosage: 125 MG (UNK, 3 IN 1 D), ORAL
     Route: 048
     Dates: start: 20041201
  2. TRACLEER [Concomitant]
  3. DILZEM [Concomitant]
  4. OMEPRAZOLE [Concomitant]
  5. LEVOTHYROXINE SODIUM [Concomitant]
  6. MARCUMAR [Concomitant]
  7. PREDNISOLONE [Concomitant]
  8. OXYGEN (OXYGEN) [Concomitant]

REACTIONS (12)
  - ANGIOPATHY [None]
  - ARTHRALGIA [None]
  - BONE PAIN [None]
  - CLUBBING [None]
  - DIZZINESS [None]
  - DRUG INEFFECTIVE [None]
  - FALL [None]
  - FEAR [None]
  - GAIT DISTURBANCE [None]
  - HYPOXIA [None]
  - TREATMENT NONCOMPLIANCE [None]
  - VESTIBULAR DISORDER [None]
